FAERS Safety Report 8387248-9 (Version None)
Quarter: 2012Q2

REPORT INFORMATION
  Report Type: 
  Country: None (occurrence: None)
  Receive Date: 20120525
  Receipt Date: 20120516
  Transmission Date: 20120825
  Serious: Yes (Hospitalization)
  Sender: FDA-Public Use
  Company Number: US-ROCHE-1066504

PATIENT
  Sex: Female
  Weight: 72.7 kg

DRUGS (5)
  1. ESCITALOPRAM OXALATE [Suspect]
     Indication: DEPRESSION
     Route: 048
     Dates: start: 20120419, end: 20120421
  2. COPEGUS [Suspect]
     Indication: HEPATITIS C
     Dosage: 600 MG IN EVERY MORNING AND 400 MG IN EVERY EVENING
     Dates: start: 20111110, end: 20120421
  3. PEGASYS [Suspect]
     Indication: HEPATITIS C
     Route: 058
     Dates: start: 20111110, end: 20120418
  4. BLINDED ALISPORIVIR [Suspect]
     Indication: HEPATITIS C
     Route: 048
     Dates: start: 20111110, end: 20120417
  5. ESCITALOPRAM OXALATE [Suspect]
     Dates: end: 20120423

REACTIONS (7)
  - ABDOMINAL PAIN [None]
  - DYSPNOEA [None]
  - DEPRESSION [None]
  - URINARY TRACT INFECTION [None]
  - MANIA [None]
  - NAUSEA [None]
  - PANCREATIC CYST [None]
